FAERS Safety Report 7932341-5 (Version None)
Quarter: 2011Q4

REPORT INFORMATION
  Report Type: 
  Country: None (occurrence: None)
  Receive Date: 20111121
  Receipt Date: 20111121
  Transmission Date: 20120403
  Serious: Yes (Other)
  Sender: FDA-Public Use
  Company Number: US-ABBOTT-11P-163-0732192-00

PATIENT
  Sex: Female
  Weight: 55.842 kg

DRUGS (5)
  1. PRILOSEC [Concomitant]
     Indication: PRODUCT USED FOR UNKNOWN INDICATION
  2. TRAMADOL HCL [Concomitant]
     Indication: PRODUCT USED FOR UNKNOWN INDICATION
  3. HUMIRA [Suspect]
     Indication: RHEUMATOID ARTHRITIS
     Route: 058
     Dates: start: 20101201
  4. CELEBREX [Concomitant]
     Indication: PRODUCT USED FOR UNKNOWN INDICATION
  5. FOSAMAX [Concomitant]
     Indication: PRODUCT USED FOR UNKNOWN INDICATION

REACTIONS (10)
  - OROPHARYNGEAL PAIN [None]
  - MENISCUS LESION [None]
  - COUGH [None]
  - CONJUNCTIVITIS INFECTIVE [None]
  - DIARRHOEA [None]
  - FALL [None]
  - NASAL CONGESTION [None]
  - ARTHRALGIA [None]
  - RESPIRATORY TRACT CONGESTION [None]
  - KNEE ARTHROPLASTY [None]
